FAERS Safety Report 25224217 (Version 2)
Quarter: 2025Q2

REPORT INFORMATION
  Report Type: Report from Study
  Country: US (occurrence: US)
  Receive Date: 20250422
  Receipt Date: 20250425
  Transmission Date: 20250717
  Serious: No
  Sender: ACADIA PHARMACEUTICALS
  Company Number: US-ACADIA PHARMACEUTICALS INC.-ACA-2025-PIM-004404

PATIENT
  Age: 74 Year
  Sex: Female

DRUGS (15)
  1. NUPLAZID [Suspect]
     Active Substance: PIMAVANSERIN TARTRATE
     Indication: Parkinson^s disease psychosis
     Dosage: 34 MILLIGRAM, QD
     Route: 048
     Dates: start: 20250409, end: 20250411
  2. SPIRONOLACTONE [Concomitant]
     Active Substance: SPIRONOLACTONE
  3. AMANTADINE [Concomitant]
     Active Substance: AMANTADINE
  4. ATENOLOL [Concomitant]
     Active Substance: ATENOLOL
  5. LISINOPRIL [Concomitant]
     Active Substance: LISINOPRIL
  6. OMEPRAZOLE [Concomitant]
     Active Substance: OMEPRAZOLE
  7. SINEMET [Concomitant]
     Active Substance: CARBIDOPA\LEVODOPA
  8. DULOXETINE [Concomitant]
     Active Substance: DULOXETINE
  9. ATORVASTATIN [Concomitant]
     Active Substance: ATORVASTATIN
  10. VITAMIN D3 [Concomitant]
     Active Substance: CHOLECALCIFEROL
  11. AMLODIPINE [Concomitant]
     Active Substance: AMLODIPINE BESYLATE
  12. PREGABALIN [Concomitant]
     Active Substance: PREGABALIN
  13. PRAMIPEXOLE [Concomitant]
     Active Substance: PRAMIPEXOLE
  14. STOOL SOFTENER (DOCUSATE) [Concomitant]
     Active Substance: DOCUSATE
  15. TYLENOL [Concomitant]
     Active Substance: ACETAMINOPHEN

REACTIONS (9)
  - Dizziness [Not Recovered/Not Resolved]
  - Balance disorder [Not Recovered/Not Resolved]
  - Headache [Unknown]
  - Malaise [Not Recovered/Not Resolved]
  - Confusional state [Not Recovered/Not Resolved]
  - Adverse drug reaction [Unknown]
  - Freezing phenomenon [Unknown]
  - Nausea [Unknown]
  - Gait disturbance [Unknown]

NARRATIVE: CASE EVENT DATE: 20250409
